FAERS Safety Report 7317780-8 (Version None)
Quarter: 2011Q1

REPORT INFORMATION
  Report Type: 
  Country: None (occurrence: None)
  Receive Date: 20110226
  Receipt Date: 20101209
  Transmission Date: 20110831
  Serious: No
  Sender: FDA-Public Use
  Company Number: US-ALLERGAN-1016039US

PATIENT
  Age: 38 Year
  Sex: Female

DRUGS (1)
  1. BOTOX COSMETIC [Suspect]
     Indication: SKIN WRINKLING
     Dosage: 24 UNITS, SINGLE
     Route: 030
     Dates: start: 20101020, end: 20101020

REACTIONS (11)
  - FEELING ABNORMAL [None]
  - NAUSEA [None]
  - DIZZINESS [None]
  - ANXIETY [None]
  - DIARRHOEA [None]
  - DECREASED APPETITE [None]
  - CHILLS [None]
  - FEAR [None]
  - CRYING [None]
  - VOMITING [None]
  - INFLUENZA LIKE ILLNESS [None]
